FAERS Safety Report 10623602 (Version 2)
Quarter: 2014Q4

REPORT INFORMATION
  Report Type: Report from Study
  Country: US (occurrence: US)
  Receive Date: 20141203
  Receipt Date: 20141222
  Transmission Date: 20150529
  Serious: Yes (Hospitalization, Other)
  Sender: FDA-Public Use
  Company Number: US-ACTELION-A-US2014-108911

PATIENT
  Age: 13 Year
  Sex: Female
  Weight: 67.9 kg

DRUGS (5)
  1. ADCIRCA [Concomitant]
     Active Substance: TADALAFIL
     Dosage: 20 MG, BID
  2. ALBUTEROL. [Concomitant]
     Active Substance: ALBUTEROL
     Dosage: 2 PUFF, PRN
  3. REMODULIN [Concomitant]
     Active Substance: TREPROSTINIL
     Dosage: 2.5 MG/ML, UNK
  4. TRACLEER [Suspect]
     Active Substance: BOSENTAN\BOSENTAN MONOHYDRATE
     Indication: PORTOPULMONARY HYPERTENSION
     Dosage: 62.5 MG, BID
     Route: 048
     Dates: start: 20120501, end: 20141103
  5. OXYGEN. [Concomitant]
     Active Substance: OXYGEN

REACTIONS (3)
  - Liver function test abnormal [Recovered/Resolved]
  - Liver transplant [Unknown]
  - Splenectomy [Unknown]

NARRATIVE: CASE EVENT DATE: 20140915
